FAERS Safety Report 13899500 (Version 1)
Quarter: 2017Q3

REPORT INFORMATION
  Report Type: Spontaneous
  Country: US (occurrence: US)
  Receive Date: 20170823
  Receipt Date: 20170823
  Transmission Date: 20171127
  Serious: No
  Sender: FDA-Public Use
  Company Number: US-JAZZ-2017-US-008479

PATIENT
  Sex: Male

DRUGS (14)
  1. XYREM [Suspect]
     Active Substance: SODIUM OXYBATE
     Dosage: DOSE ADJUSTMENT
     Route: 048
     Dates: start: 201503, end: 201606
  2. FISH OIL 1-A-DAY + VITAMIN D3 [Concomitant]
  3. CLARITIN [Concomitant]
     Active Substance: LORATADINE
  4. TIZANIDINE HCL [Concomitant]
     Active Substance: TIZANIDINE HYDROCHLORIDE
  5. PREDNISONE. [Concomitant]
     Active Substance: PREDNISONE
  6. WELLBUTRIN [Concomitant]
     Active Substance: BUPROPION HYDROCHLORIDE
  7. IBUPROFEN. [Concomitant]
     Active Substance: IBUPROFEN
  8. ADDERALL [Concomitant]
     Active Substance: AMPHETAMINE ASPARTATE\AMPHETAMINE SULFATE\DEXTROAMPHETAMINE SACCHARATE\DEXTROAMPHETAMINE SULFATE
  9. XYREM [Suspect]
     Active Substance: SODIUM OXYBATE
     Indication: NARCOLEPSY
     Dosage: 2.25G, BID
     Route: 048
     Dates: start: 201502, end: 2015
  10. XYREM [Suspect]
     Active Substance: SODIUM OXYBATE
     Dosage: 4.5G, BID
     Route: 048
     Dates: start: 201607
  11. PROVIGIL [Concomitant]
     Active Substance: MODAFINIL
  12. VITAMIN C [Concomitant]
     Active Substance: ASCORBIC ACID
  13. ARGININE HCL                       /00126101/ [Concomitant]
  14. CREATINE MONOHYDRATE [Concomitant]
     Active Substance: CREATINE MONOHYDRATE

REACTIONS (2)
  - Nausea [Unknown]
  - Headache [Unknown]
